FAERS Safety Report 20364551 (Version 3)
Quarter: 2022Q1

REPORT INFORMATION
  Report Type: Report from Study
  Country: US (occurrence: US)
  Receive Date: 20220122
  Receipt Date: 20220128
  Transmission Date: 20220424
  Serious: No
  Sender: FDA-Public Use
  Company Number: US-NOVARTISTESTPH-NVSC2022US013380

PATIENT
  Sex: Male

DRUGS (1)
  1. TASIGNA [Suspect]
     Active Substance: NILOTINIB
     Indication: Product used for unknown indication
     Dosage: UNK
     Route: 048

REACTIONS (10)
  - Rash [Unknown]
  - Pruritus [Unknown]
  - Constipation [Unknown]
  - Diarrhoea [Unknown]
  - Cardiac murmur [Unknown]
  - Feeling cold [Unknown]
  - Arthritis [Unknown]
  - Skin haemorrhage [Unknown]
  - Peripheral coldness [Unknown]
  - Abdominal discomfort [Unknown]
